FAERS Safety Report 10089155 (Version 1)
Quarter: 2014Q2

REPORT INFORMATION
  Report Type: Spontaneous
  Country: US (occurrence: None)
  Receive Date: 20140418
  Receipt Date: 20140418
  Transmission Date: 20141212
  Serious: Yes (Other)
  Sender: FDA-Public Use
  Company Number: None

PATIENT
  Age: 37 Year
  Sex: Female
  Weight: 62.14 kg

DRUGS (1)
  1. CYMBALTA [Suspect]
     Indication: ROAD TRAFFIC ACCIDENT
     Route: 048

REACTIONS (5)
  - Vomiting [None]
  - Tremor [None]
  - Crying [None]
  - Headache [None]
  - Quality of life decreased [None]
